FAERS Safety Report 4781367-1 (Version None)
Quarter: 2005Q3

REPORT INFORMATION
  Report Type: 
  Country: None (occurrence: None)
  Receive Date: 20050914
  Receipt Date: 20050112
  Transmission Date: 20060218
  Serious: Yes (Hospitalization)
  Sender: FDA-Public Use
  Company Number: 163-20785-05010220

PATIENT
  Age: 77 Year
  Sex: Female
  Weight: 74 kg

DRUGS (8)
  1. THALOMID [Suspect]
     Indication: NON-SMALL CELL LUNG CANCER
     Dosage: 200 MG, DAILY, ORAL
     Route: 048
     Dates: start: 20050103, end: 20050105
  2. CARBOPLATIN [Suspect]
     Indication: NON-SMALL CELL LUNG CANCER
     Dosage: 500 MG, DAILY, INTRAVENOUS
     Route: 042
     Dates: start: 20050103, end: 20050103
  3. PACLITAXEL [Suspect]
     Indication: NON-SMALL CELL LUNG CANCER
     Dosage: 400 MG, DAILY, INTRAVENOUS
     Route: 042
     Dates: start: 20050103, end: 20050103
  4. ASPIRIN [Concomitant]
  5. CALCIUM WITH VITAMIN D [Concomitant]
  6. HYDROCHLOROTHIAZIDE [Concomitant]
  7. MULTI-VITAMINS [Concomitant]
  8. NEXIUM [Concomitant]

REACTIONS (3)
  - DIZZINESS [None]
  - FATIGUE [None]
  - SYNCOPE [None]
